FAERS Safety Report 8510614 (Version 3)
Quarter: 2015Q3

REPORT INFORMATION
  Report Type: Report from Study
  Country: FR (occurrence: FR)
  Receive Date: 20120413
  Receipt Date: 20150723
  Transmission Date: 20151125
  Serious: Yes (Hospitalization, Other)
  Sender: FDA-Public Use
  Company Number: FR-ACTELION-A-CH2010-40540

PATIENT
  Age: 75 Year
  Sex: Male
  Weight: 74 kg

DRUGS (6)
  1. XATRAL [Concomitant]
     Active Substance: ALFUZOSIN
  2. ZAVESCA [Suspect]
     Active Substance: MIGLUSTAT
     Dosage: 300 MG, OD
     Route: 048
  3. ZAVESCA [Suspect]
     Active Substance: MIGLUSTAT
     Indication: GAUCHER^S DISEASE
     Dosage: 100 MG, TID
     Route: 048
     Dates: start: 20050412
  4. ZAVESCA [Suspect]
     Active Substance: MIGLUSTAT
     Dosage: 100 MG, OD
     Route: 048
     Dates: start: 200511
  5. ZAVESCA [Suspect]
     Active Substance: MIGLUSTAT
     Dosage: 200 MG, OD
     Route: 048
  6. AMAREL [Concomitant]
     Active Substance: GLIMEPIRIDE

REACTIONS (8)
  - Aphasia [Recovered/Resolved]
  - Tremor [Recovered/Resolved]
  - Balance disorder [Recovered/Resolved]
  - Chitotriosidase increased [Unknown]
  - Transient ischaemic attack [Recovered/Resolved]
  - Weight decreased [Recovering/Resolving]
  - Concomitant disease aggravated [Recovered/Resolved]
  - Neuropathy peripheral [Unknown]

NARRATIVE: CASE EVENT DATE: 20081010
